FAERS Safety Report 14368196 (Version 1)
Quarter: 2018Q1

REPORT INFORMATION
  Report Type: Spontaneous
  Country: US (occurrence: US)
  Receive Date: 20180109
  Receipt Date: 20180109
  Transmission Date: 20180509
  Serious: No
  Sender: FDA-Public Use
  Company Number: US-PERRIGO-16US023108

PATIENT
  Age: 37 Year
  Sex: Female
  Weight: 59.86 kg

DRUGS (3)
  1. COLOCORT [Suspect]
     Active Substance: HYDROCORTISONE
     Dosage: 100 MG, PRN
     Route: 054
     Dates: start: 20161224
  2. COLOCORT [Suspect]
     Active Substance: HYDROCORTISONE
     Indication: CROHN^S DISEASE
     Dosage: 100 MG, PRN
     Route: 048
     Dates: end: 20161223
  3. PURINETHOL [Concomitant]
     Active Substance: MERCAPTOPURINE
     Indication: CROHN^S DISEASE
     Dosage: UNK
     Route: 065

REACTIONS (2)
  - Drug ineffective [Recovered/Resolved]
  - Off label use [Not Recovered/Not Resolved]
